FAERS Safety Report 5109495-1 (Version None)
Quarter: 2006Q3

REPORT INFORMATION
  Report Type: 
  Country: None (occurrence: None)
  Receive Date: 20060918
  Receipt Date: 20060904
  Transmission Date: 20061208
  Serious: Yes (Hospitalization)
  Sender: FDA-Public Use
  Company Number: 2006107589

PATIENT
  Age: 84 Year
  Sex: Female

DRUGS (9)
  1. SUTENT [Suspect]
     Indication: METASTATIC RENAL CELL CARCINOMA
     Dosage: CYCLIC - INTERVAL: 4 OF 6 WEEKS, ORAL
     Route: 048
     Dates: start: 20060805
  2. RISEDRONATE (RISEDRONIC ACID) [Concomitant]
  3. ACETYLCYSTEINE [Concomitant]
  4. OXAZEPAM [Concomitant]
  5. METOPROLOL (METOPROLOL) [Concomitant]
  6. GABAPENTIN [Concomitant]
  7. FUROSEMIDE [Concomitant]
  8. PANTOPRAZOLE SODIUM [Concomitant]
  9. OXYCONTIN [Concomitant]

REACTIONS (6)
  - CEREBRAL ISCHAEMIA [None]
  - CEREBROVASCULAR ACCIDENT [None]
  - CEREBROVASCULAR DISORDER [None]
  - COGNITIVE DISORDER [None]
  - CONFUSIONAL STATE [None]
  - GAIT DISTURBANCE [None]
